FAERS Safety Report 17572100 (Version 1)
Quarter: 2020Q1

REPORT INFORMATION
  Report Type: Spontaneous
  Country: BR (occurrence: BR)
  Receive Date: 20200323
  Receipt Date: 20200323
  Transmission Date: 20200409
  Serious: Yes (Hospitalization, Other)
  Sender: FDA-Public Use
  Company Number: BR-GLAXOSMITHKLINE-BR2019GSK012492

PATIENT
  Age: 72 Year
  Sex: Female
  Weight: 72 kg

DRUGS (1)
  1. BENLYSTA [Suspect]
     Active Substance: BELIMUMAB
     Indication: SYSTEMIC LUPUS ERYTHEMATOSUS
     Dosage: UNK
     Dates: start: 20190110

REACTIONS (16)
  - Ear pruritus [Unknown]
  - Scab [Unknown]
  - Vulvovaginal dryness [Unknown]
  - Arthralgia [Unknown]
  - Erythema [Unknown]
  - Hypersensitivity [Unknown]
  - Weight increased [Unknown]
  - Urinary tract infection [Recovering/Resolving]
  - Oral mucosal exfoliation [Unknown]
  - Excessive cerumen production [Recovered/Resolved]
  - Dry mouth [Unknown]
  - Lip dry [Unknown]
  - Infection [Unknown]
  - Immunodeficiency [Unknown]
  - Inappropriate schedule of product administration [Unknown]
  - Limb discomfort [Unknown]

NARRATIVE: CASE EVENT DATE: 20190227
